FAERS Safety Report 5178917-2 (Version None)
Quarter: 2006Q4

REPORT INFORMATION
  Report Type: 
  Country: None (occurrence: None)
  Receive Date: 20061213
  Receipt Date: 20061213
  Transmission Date: 20070319
  Serious: Yes (Hospitalization)
  Sender: FDA-Public Use
  Company Number: None

PATIENT
  Age: 82 Year
  Sex: Male
  Weight: 90.7 kg

DRUGS (1)
  1. ENOXAPARIN SODIUM [Suspect]
     Dosage: 90MG BID SQ
     Route: 058

REACTIONS (4)
  - HAEMOGLOBIN DECREASED [None]
  - POST PROCEDURAL HAEMATOMA [None]
  - POST PROCEDURAL HAEMORRHAGE [None]
  - PROTHROMBIN TIME PROLONGED [None]
